FAERS Safety Report 15406076 (Version 5)
Quarter: 2019Q3

REPORT INFORMATION
  Report Type: Spontaneous
  Country: US (occurrence: US)
  Receive Date: 20180920
  Receipt Date: 20190924
  Transmission Date: 20191004
  Serious: No
  Sender: FDA-Public Use
  Company Number: US-PFIZER INC-2018380867

PATIENT
  Age: 75 Year
  Sex: Female
  Weight: 76.19 kg

DRUGS (4)
  1. ADVIL [Suspect]
     Active Substance: IBUPROFEN
     Indication: SPINAL PAIN
     Dosage: 60 MG, 2X/DAY
     Dates: start: 201506, end: 201806
  2. LYRICA [Concomitant]
     Active Substance: PREGABALIN
     Dosage: UNK
  3. GABAPENTIN. [Concomitant]
     Active Substance: GABAPENTIN
     Dosage: UNK
     Dates: start: 201506, end: 20170809
  4. ADVIL [Suspect]
     Active Substance: IBUPROFEN
     Dosage: 60 MG, 3X/DAY

REACTIONS (2)
  - Drug ineffective [Recovered/Resolved]
  - Intentional product use issue [Unknown]
